FAERS Safety Report 9663724 (Version 1)
Quarter: 2013Q4

REPORT INFORMATION
  Report Type: Spontaneous
  Country: JP (occurrence: JP)
  Receive Date: 20131101
  Receipt Date: 20131101
  Transmission Date: 20140711
  Serious: Yes (Other)
  Sender: FDA-Public Use
  Company Number: PHHY2013JP121322

PATIENT
  Sex: 0
  Weight: 1.86 kg

DRUGS (1)
  1. NEORAL [Suspect]
     Dosage: MATERNAL DOSE: 100MG/DAY
     Route: 064

REACTIONS (3)
  - Low birth weight baby [Unknown]
  - Apgar score abnormal [Unknown]
  - Foetal exposure during pregnancy [Unknown]
